FAERS Safety Report 7605203-0 (Version None)
Quarter: 2011Q3

REPORT INFORMATION
  Report Type: 
  Country: None (occurrence: None)
  Receive Date: 20110712
  Receipt Date: 20110712
  Transmission Date: 20111222
  Serious: Yes (Hospitalization)
  Sender: FDA-Public Use
  Company Number: None

PATIENT
  Age: 60 Year
  Sex: Male
  Weight: 139.1 kg

DRUGS (2)
  1. VANCOMYCIN [Suspect]
     Indication: BACTERAEMIA
     Dosage: 1000 MG OTHER IV
     Route: 042
     Dates: start: 20110609, end: 20110610
  2. PIPERACILLIN AND TAZOBACTAM [Suspect]
     Indication: BACTERAEMIA
     Dosage: 3.375 GM OTHER IV
     Route: 042
     Dates: start: 20110609, end: 20110612

REACTIONS (1)
  - ERYTHEMA MULTIFORME [None]
